FAERS Safety Report 9402237 (Version 6)
Quarter: 2014Q4

REPORT INFORMATION
  Report Type: Spontaneous
  Country: US (occurrence: US)
  Receive Date: 20130716
  Receipt Date: 20141229
  Transmission Date: 20150529
  Serious: Yes (Hospitalization, Other)
  Sender: FDA-Public Use
  Company Number: US-BAYER-2013-073237

PATIENT
  Age: 65 Year
  Sex: Female
  Weight: 90 kg

DRUGS (26)
  1. BAYER ADVANCED ASPIRIN EXTRA STRENGTH [Suspect]
     Active Substance: ASPIRIN
     Indication: HEADACHE
  2. KETOCONAZOLE. [Concomitant]
     Active Substance: KETOCONAZOLE
  3. LOTEMAX [Concomitant]
     Active Substance: LOTEPREDNOL ETABONATE
  4. NEOMYCIN SULFATE/POLYMYXIN B SULFATE [Concomitant]
     Active Substance: NEOMYCIN SULFATE\POLYMYXIN B SULFATE
  5. AMMONIUM LACTATE. [Concomitant]
     Active Substance: AMMONIUM LACTATE
  6. CLINDAMYCIN HYDROCHLORIDE. [Concomitant]
     Active Substance: CLINDAMYCIN HYDROCHLORIDE
  7. HYDROCODONE W/ACETAMINOPHEN [Concomitant]
     Active Substance: ACETAMINOPHEN\HYDROCODONE BITARTRATE
  8. DIOVAN [Concomitant]
     Active Substance: VALSARTAN
  9. BAYER ADVANCED ASPIRIN EXTRA STRENGTH [Suspect]
     Active Substance: ASPIRIN
     Indication: ARTHRALGIA
     Dosage: 2 DF, PRN
     Route: 048
     Dates: start: 2012
  10. COREG [Concomitant]
     Active Substance: CARVEDILOL
  11. BAYER LOW DOSE [Concomitant]
     Active Substance: ASPIRIN
     Indication: ISCHAEMIC HEART DISEASE PROPHYLAXIS
  12. CIPROFLOXACIN. [Concomitant]
     Active Substance: CIPROFLOXACIN
  13. PRILOSEC [Concomitant]
     Active Substance: OMEPRAZOLE MAGNESIUM
  14. AZITHROMYCIN [Concomitant]
     Active Substance: AZITHROMYCIN ANHYDROUS
  15. DESONIDE. [Concomitant]
     Active Substance: DESONIDE
  16. LIDOCAINE. [Concomitant]
     Active Substance: LIDOCAINE
  17. LOSARTAN POTASSIUM. [Concomitant]
     Active Substance: LOSARTAN POTASSIUM
  18. RESTASIS [Concomitant]
     Active Substance: CYCLOSPORINE
  19. CALCIUM [Concomitant]
     Active Substance: CALCIUM
  20. AMOXICILLIN. [Concomitant]
     Active Substance: AMOXICILLIN
  21. CHLORHEXIDINE [Concomitant]
     Active Substance: CHLORHEXIDINE
  22. FLUTICASONE PROPIONATE. [Concomitant]
     Active Substance: FLUTICASONE PROPIONATE
  23. TOBRAMYCIN. [Concomitant]
     Active Substance: TOBRAMYCIN
  24. BAYER ADVANCED ASPIRIN EXTRA STRENGTH [Suspect]
     Active Substance: ASPIRIN
     Indication: SINUS DISORDER
  25. AMLODIPINE BESYLATE. [Concomitant]
     Active Substance: AMLODIPINE BESYLATE
  26. IBUPROFEN. [Concomitant]
     Active Substance: IBUPROFEN

REACTIONS (7)
  - Blood pressure increased [None]
  - Hypoaesthesia oral [Not Recovered/Not Resolved]
  - Tongue discolouration [Recovered/Resolved]
  - Glossodynia [Not Recovered/Not Resolved]
  - Expired product administered [None]
  - Dysgeusia [Unknown]
  - Chemical burn of gastrointestinal tract [Recovered/Resolved]

NARRATIVE: CASE EVENT DATE: 20130607
